FAERS Safety Report 25628346 (Version 3)
Quarter: 2025Q3

REPORT INFORMATION
  Report Type: Report from Study
  Country: EU (occurrence: EU)
  Receive Date: 20250731
  Receipt Date: 20250926
  Transmission Date: 20251020
  Serious: Yes (Other)
  Sender: BIOMARIN
  Company Number: EU-BIOMARINAP-DE-2025-167689

PATIENT
  Sex: Female
  Weight: 60.5 kg

DRUGS (9)
  1. PALYNZIQ [Suspect]
     Active Substance: PEGVALIASE-PQPZ
     Indication: Phenylketonuria
  2. IBUPROFEN [Concomitant]
     Active Substance: IBUPROFEN
     Indication: Premedication
  3. PREDNISOLONE [Concomitant]
     Active Substance: PREDNISOLONE
     Indication: Premedication
  4. DESLORATADINE [Concomitant]
     Active Substance: DESLORATADINE
     Indication: Premedication
  5. DESLORATADINE [Concomitant]
     Active Substance: DESLORATADINE
     Indication: Antiallergic therapy
     Dates: start: 20250724, end: 20250724
  6. EMLA [Concomitant]
     Active Substance: LIDOCAINE\PRILOCAINE
     Indication: Local anaesthesia
  7. EMLA [Concomitant]
     Active Substance: LIDOCAINE\PRILOCAINE
     Indication: Premedication
  8. HYDROCORTISONE [Concomitant]
     Active Substance: HYDROCORTISONE
     Indication: Injection site swelling
  9. HYDROCORTISONE [Concomitant]
     Active Substance: HYDROCORTISONE
     Indication: Premedication

REACTIONS (1)
  - Pharyngeal swelling [Recovered/Resolved]

NARRATIVE: CASE EVENT DATE: 20250724
